FAERS Safety Report 14158094 (Version 1)
Quarter: 2017Q4

REPORT INFORMATION
  Report Type: Report from Study
  Country: None (occurrence: US)
  Receive Date: 20171105
  Receipt Date: 20171105
  Transmission Date: 20180321
  Serious: Yes (Hospitalization, Other)
  Sender: FDA-Public Use
  Company Number: US-ABBVIE-17K-163-2145806-00

PATIENT
  Sex: Female
  Weight: 87.17 kg

DRUGS (5)
  1. HUMIRA [Suspect]
     Active Substance: ADALIMUMAB
     Route: 058
     Dates: start: 201705
  2. HUMIRA [Suspect]
     Active Substance: ADALIMUMAB
     Indication: COLITIS ULCERATIVE
     Route: 058
     Dates: start: 2016, end: 2016
  3. HUMIRA [Suspect]
     Active Substance: ADALIMUMAB
     Route: 058
     Dates: start: 201705, end: 201705
  4. CREON [Suspect]
     Active Substance: PANCRELIPASE AMYLASE\PANCRELIPASE LIPASE\PANCRELIPASE PROTEASE
     Indication: AUTOIMMUNE PANCREATITIS
     Dosage: 2 WITH EACH MEAL, AND ONE WITH EACH SNACK
     Route: 065
     Dates: start: 2015
  5. ENTYVIO [Suspect]
     Active Substance: VEDOLIZUMAB
     Indication: PRODUCT USED FOR UNKNOWN INDICATION
     Route: 065

REACTIONS (16)
  - Myalgia [Recovering/Resolving]
  - Skin lesion [Recovered/Resolved]
  - Pharyngeal oedema [Recovered/Resolved]
  - Skin lesion [Recovering/Resolving]
  - Influenza like illness [Recovered/Resolved]
  - Dyspnoea [Recovered/Resolved]
  - Joint swelling [Not Recovered/Not Resolved]
  - Hypersensitivity [Recovered/Resolved]
  - Colitis ulcerative [Recovered/Resolved]
  - Alopecia [Recovering/Resolving]
  - Erythema nodosum [Recovered/Resolved]
  - Arthralgia [Not Recovered/Not Resolved]
  - Breast reconstruction [Recovered/Resolved]
  - Muscle spasms [Recovering/Resolving]
  - Erythema nodosum [Not Recovered/Not Resolved]
  - Autoimmune pancreatitis [Recovered/Resolved]

NARRATIVE: CASE EVENT DATE: 2016
